FAERS Safety Report 24564375 (Version 2)
Quarter: 2024Q4

REPORT INFORMATION
  Report Type: Spontaneous
  Country: US (occurrence: US)
  Receive Date: 20241030
  Receipt Date: 20241030
  Transmission Date: 20250114
  Serious: Yes (Other)
  Sender: ROCHE
  Company Number: US-ROCHE-10000115924

PATIENT
  Age: 16 Year
  Sex: Male

DRUGS (1)
  1. TAMIFLU [Suspect]
     Active Substance: OSELTAMIVIR PHOSPHATE
     Indication: Product used for unknown indication
     Dosage: PILL
     Route: 048
     Dates: start: 2018

REACTIONS (5)
  - Urticaria [Unknown]
  - Swollen tongue [Unknown]
  - Dyspnoea [Unknown]
  - Respiratory arrest [Unknown]
  - Rash erythematous [Unknown]

NARRATIVE: CASE EVENT DATE: 20180101
